FAERS Safety Report 9282231 (Version 2)
Quarter: 2013Q2

REPORT INFORMATION
  Report Type: Spontaneous
  Country: US (occurrence: US)
  Receive Date: 20130510
  Receipt Date: 20130611
  Transmission Date: 20140414
  Serious: No
  Sender: FDA-Public Use
  Company Number: US-PFIZER INC-2013142724

PATIENT
  Age: 57 Year
  Sex: Female

DRUGS (2)
  1. INLYTA [Suspect]
     Indication: RENAL CANCER
     Dosage: 5 MG, 2X/DAY
     Dates: start: 20130228
  2. INLYTA [Suspect]
     Dosage: 5 MG, 2X/DAY (5 MG TAB EVERY 12 HOURS)
     Dates: start: 201305

REACTIONS (2)
  - Alopecia [Unknown]
  - Nausea [Unknown]
